FAERS Safety Report 9410495 (Version 2)
Quarter: 2013Q3

REPORT INFORMATION
  Report Type: Report from Study
  Country: US (occurrence: US)
  Receive Date: 20130719
  Receipt Date: 20130830
  Transmission Date: 20140515
  Serious: No
  Sender: FDA-Public Use
  Company Number: US-VERTEX PHARMACEUTICALS INC-AE-2012-004389

PATIENT
  Age: 58 Year
  Sex: Male

DRUGS (5)
  1. VX-950 (TELAPREVIR) [Suspect]
     Indication: HEPATITIS C
     Dosage: 750 MG, TID
     Route: 048
     Dates: start: 20111210, end: 20120303
  2. PEGASYS [Suspect]
     Indication: HEPATITIS C
     Dosage: 180 ?G, QW
     Route: 058
     Dates: start: 20111210, end: 201202
  3. PEGASYS [Suspect]
     Dosage: 135 ?G, QW
     Route: 058
     Dates: start: 201202, end: 20120428
  4. RIBAVIRIN [Suspect]
     Indication: HEPATITIS C
     Dosage: 1200 MG, QD
     Route: 048
     Dates: start: 20111210, end: 20120308
  5. RIBAVIRIN [Suspect]
     Dosage: 800 MG, QD
     Route: 048
     Dates: start: 20120309, end: 20120428

REACTIONS (3)
  - White blood cell count decreased [Not Recovered/Not Resolved]
  - Haemoglobin decreased [Not Recovered/Not Resolved]
  - Drug ineffective [Unknown]
